FAERS Safety Report 4477043-5 (Version None)
Quarter: 2004Q4

REPORT INFORMATION
  Report Type: 
  Country: None (occurrence: None)
  Receive Date: 20041018
  Receipt Date: 20040223
  Transmission Date: 20050328
  Serious: Yes (Death)
  Sender: FDA-Public Use
  Company Number: BE-JNJFOC-20040205230

PATIENT
  Age: 69 Year
  Sex: Male

DRUGS (10)
  1. CISAPRIDE [Suspect]
     Route: 065
  2. ZESTRIL [Concomitant]
     Route: 049
  3. ISOTEN [Concomitant]
     Route: 049
  4. CORTISONE [Concomitant]
     Route: 049
  5. ELTHYRONE [Concomitant]
     Route: 049
  6. SUSTANON [Concomitant]
     Route: 030
  7. SUSTANON [Concomitant]
     Route: 030
  8. SUSTANON [Concomitant]
     Route: 030
  9. SUSTANON [Concomitant]
     Indication: HYPOGONADISM
     Route: 030
  10. ZANTAC [Concomitant]
     Route: 049

REACTIONS (1)
  - BRAIN TUMOUR OPERATION [None]
